FAERS Safety Report 11378749 (Version 1)
Quarter: 2015Q3

REPORT INFORMATION
  Report Type: Spontaneous
  Country: US (occurrence: US)
  Receive Date: 20150811
  Receipt Date: 20150811
  Transmission Date: 20151125
  Serious: No
  Sender: FDA-Public Use
  Company Number: US-ELI_LILLY_AND_COMPANY-US200905002401

PATIENT
  Age: 52 Year
  Sex: Male

DRUGS (2)
  1. HUMULIN R [Suspect]
     Active Substance: INSULIN HUMAN
     Dates: start: 200904, end: 200905
  2. HUMULIN N [Suspect]
     Active Substance: INSULIN HUMAN
     Dates: start: 200904, end: 200905

REACTIONS (2)
  - Generalised erythema [Unknown]
  - Pruritus generalised [Unknown]
